FAERS Safety Report 4949472-4 (Version None)
Quarter: 2006Q1

REPORT INFORMATION
  Report Type: 
  Country: None (occurrence: None)
  Receive Date: 20060321
  Receipt Date: 20050823
  Transmission Date: 20060701
  Serious: Yes (Hospitalization)
  Sender: FDA-Public Use
  Company Number: PHHO2005IE13202

PATIENT
  Age: 60 Year
  Sex: Female
  Weight: 94.3 kg

DRUGS (18)
  1. ELTROXIN [Concomitant]
  2. AMITRIPTYLINE HCL [Concomitant]
  3. DETROL [Concomitant]
  4. ZOCOR [Concomitant]
  5. RISPERIDONE [Concomitant]
  6. SERTRALINE [Concomitant]
  7. NITROFURANTOIN [Concomitant]
  8. NATEGLINIDE [Suspect]
     Indication: GLUCOSE TOLERANCE IMPAIRED
     Dosage: LEVEL 1
     Dates: start: 20031111
  9. NATEGLINIDE [Suspect]
     Dosage: LEVEL 2
  10. DIOVAN [Suspect]
     Indication: CARDIOVASCULAR DISORDER
     Dosage: LEVEL 1
     Dates: start: 20031111
  11. DIOVAN [Suspect]
     Dosage: LEVEL 2
  12. L-THYROXINE [Concomitant]
  13. DETRUSITOL [Concomitant]
  14. ROSUVASTATIN [Concomitant]
  15. OMACOR [Concomitant]
  16. LASIX [Concomitant]
  17. ESOMEPRAZOLE [Concomitant]
  18. ASPIRIN [Concomitant]

REACTIONS (11)
  - ABDOMINAL PAIN [None]
  - ABDOMINAL PAIN UPPER [None]
  - CHOLECYSTECTOMY [None]
  - CHOLELITHIASIS [None]
  - DECREASED APPETITE [None]
  - GASTRITIS [None]
  - HIATUS HERNIA [None]
  - LETHARGY [None]
  - MELAENA [None]
  - PANCREATITIS [None]
  - REFLUX OESOPHAGITIS [None]
